FAERS Safety Report 7388392-5 (Version None)
Quarter: 2011Q2

REPORT INFORMATION
  Report Type: 
  Country: None (occurrence: None)
  Receive Date: 20110401
  Receipt Date: 20110321
  Transmission Date: 20111010
  Serious: Yes (Hospitalization)
  Sender: FDA-Public Use
  Company Number: FR-US-EMD SERONO, INC.-7048872

PATIENT
  Sex: Female

DRUGS (2)
  1. GONAL-F [Suspect]
     Indication: ASSISTED FERTILISATION
     Route: 058
     Dates: start: 20100401, end: 20100701
  2. CLOMID [Suspect]
     Indication: ASSISTED FERTILISATION
     Route: 048
     Dates: start: 20100801, end: 20110201

REACTIONS (1)
  - LUNG NEOPLASM MALIGNANT [None]
